APPROVED DRUG PRODUCT: KEFLET
Active Ingredient: CEPHALEXIN
Strength: EQ 500MG BASE **Federal Register determination that product was not discontinued or withdrawn for safety or effectiveness reasons**
Dosage Form/Route: TABLET;ORAL
Application: N050440 | Product #001
Applicant: ELI LILLY AND CO
Approved: Approved Prior to Jan 1, 1982 | RLD: Yes | RS: No | Type: DISCN